FAERS Safety Report 6534347-X (Version None)
Quarter: 2010Q1

REPORT INFORMATION
  Report Type: 
  Country: None (occurrence: None)
  Receive Date: 20100112
  Receipt Date: 20100106
  Transmission Date: 20100710
  Serious: Yes (Other)
  Sender: FDA-Public Use
  Company Number: BR-SANOFI-AVENTIS-2009SA009141

PATIENT
  Age: 33 Year
  Sex: Female
  Weight: 68 kg

DRUGS (6)
  1. LANTUS [Suspect]
     Indication: TYPE 2 DIABETES MELLITUS
     Route: 058
     Dates: start: 20091101, end: 20091201
  2. LANTUS [Suspect]
     Route: 058
     Dates: start: 20091201, end: 20091201
  3. SOLOSTAR [Suspect]
     Indication: TYPE 2 DIABETES MELLITUS
     Dates: start: 20091101, end: 20091201
  4. APIDRA SOLOSTAR [Suspect]
     Indication: TYPE 2 DIABETES MELLITUS
     Dosage: ACCORDING TO GLYCEMIA
     Route: 058
     Dates: start: 20091101, end: 20091201
  5. SOLOSTAR [Suspect]
     Dates: start: 20091101, end: 20091201
  6. FOLIC ACID [Concomitant]
     Route: 048
     Dates: start: 20090101

REACTIONS (4)
  - DRUG EXPOSURE DURING PREGNANCY [None]
  - FOREIGN BODY [None]
  - HYPERGLYCAEMIA [None]
  - INJECTION SITE PAIN [None]
